FAERS Safety Report 13913340 (Version 1)
Quarter: 2017Q3

REPORT INFORMATION
  Report Type: Spontaneous
  Country: US (occurrence: US)
  Receive Date: 20170828
  Receipt Date: 20170828
  Transmission Date: 20171127
  Serious: No
  Sender: FDA-Public Use
  Company Number: US-ROCHE-1130365

PATIENT
  Sex: Male

DRUGS (2)
  1. CEFACLOR. [Concomitant]
     Active Substance: CEFACLOR
  2. NUTROPIN AQ [Suspect]
     Active Substance: SOMATROPIN
     Indication: PRODUCT USED FOR UNKNOWN INDICATION
     Dosage: 0.3 MG/KG/WK
     Route: 065

REACTIONS (1)
  - Pharyngitis streptococcal [Unknown]
